FAERS Safety Report 17773304 (Version 7)
Quarter: 2023Q4

REPORT INFORMATION
  Report Type: Spontaneous
  Country: AT (occurrence: AT)
  Receive Date: 20200512
  Receipt Date: 20231212
  Transmission Date: 20240110
  Serious: Yes (Hospitalization, Other)
  Sender: FDA-Public Use
  Company Number: PHHY2019AT100015

PATIENT
  Age: 53 Year
  Sex: Female
  Weight: 70 kg

DRUGS (26)
  1. LETROZOLE [Suspect]
     Active Substance: LETROZOLE
     Indication: HER2 positive breast cancer
     Dosage: 2.5 MG, QD (MOST RECENT DOSE ON 03/APR/2019MOST RECENT DOSE PRIOR TO INTERMITTENT INCREASE IN BLOOD
     Route: 048
     Dates: start: 20190321
  2. TAXOTERE [Suspect]
     Active Substance: DOCETAXEL
     Indication: HER2 positive breast cancer
     Dosage: 397.8 MG, QW (ALSO RECEIVED DOSE ON 27/DEC/2018MOST RECENT DOSE PRIOR TO CEPHALEA AND PAIN IN THE LE
     Route: 042
     Dates: start: 20181205
  3. DENOSUMAB [Suspect]
     Active Substance: DENOSUMAB
     Indication: HER2 positive breast cancer
     Dosage: 120 MG, Q4W
     Route: 058
     Dates: start: 201903
  4. TRASTUZUMAB [Suspect]
     Active Substance: TRASTUZUMAB
     Indication: HER2 positive breast cancer
     Dosage: 576 MG, Q3W (MOST RECENT DOSE PRIOR TO THE EVENT: 17/JAN/2019)
     Route: 042
     Dates: start: 20181205
  5. XGEVA [Suspect]
     Active Substance: DENOSUMAB
     Indication: HER2 positive breast cancer
     Dosage: 120 MG, Q4W
     Route: 058
     Dates: start: 201903
  6. PERJETA [Suspect]
     Active Substance: PERTUZUMAB
     Indication: HER2 positive breast cancer
     Dosage: 2520 MG, QW (MOST RECENT DOSE PRIOR TO CEPHALEA AND PAIN IN THE LEFT CALF: 27/DEC/2018)
     Route: 042
     Dates: start: 20181205
  7. HERCEPTIN [Suspect]
     Active Substance: TRASTUZUMAB
     Indication: HER2 positive breast cancer
     Dosage: 1728 MG, QW (MOST RECENT DOSE PRIOR TO THE EVENT: 17/JAN/2019)
     Route: 042
     Dates: start: 20181205
  8. DOCETAXEL [Suspect]
     Active Substance: DOCETAXEL\DOCETAXEL ANHYDROUS
     Indication: HER2 positive breast cancer
     Dosage: 397.8 MG, QW (ALSO RECEIVED DOSE ON 27/DEC/2018MOST RECENT DOSE PRIOR TO CEPHALEA AND PAIN IN THE LE
     Route: 042
     Dates: start: 20181205
  9. ANTIFLAT [Concomitant]
     Indication: Product used for unknown indication
     Dosage: UNK
     Route: 065
     Dates: start: 20181227
  10. DEXAMETHASONE [Concomitant]
     Active Substance: DEXAMETHASONE
     Indication: Product used for unknown indication
     Dosage: UNK (ONGOING)
     Route: 065
     Dates: start: 20181204
  11. GUTTALAX [Concomitant]
     Indication: Product used for unknown indication
     Dosage: UNK
     Route: 065
     Dates: start: 20190106
  12. RILMENIDINE [Concomitant]
     Active Substance: RILMENIDINE
     Indication: Product used for unknown indication
     Dosage: UNK
     Route: 065
  13. NEULASTA [Concomitant]
     Active Substance: PEGFILGRASTIM
     Indication: Product used for unknown indication
     Dosage: UNK
     Route: 065
     Dates: start: 20181204
  14. HYDROCHLOROTHIAZIDE\OLMESARTAN MEDOXOMIL [Concomitant]
     Active Substance: HYDROCHLOROTHIAZIDE\OLMESARTAN MEDOXOMIL
     Indication: Product used for unknown indication
     Dosage: UNK (20/12,5MG)
     Route: 065
     Dates: start: 20190415
  15. HYDROCHLOROTHIAZIDE\OLMESARTAN MEDOXOMIL [Concomitant]
     Active Substance: HYDROCHLOROTHIAZIDE\OLMESARTAN MEDOXOMIL
     Dosage: UNK (20/12,5MG)
     Route: 065
     Dates: start: 20190415
  16. POLYETHYLENE GLYCOL 3350\POTASSIUM CHLORIDE\SODIUM BICARBONATE\SODIUM [Concomitant]
     Active Substance: POLYETHYLENE GLYCOL 3350\POTASSIUM CHLORIDE\SODIUM BICARBONATE\SODIUM CHLORIDE
     Indication: Product used for unknown indication
     Dosage: UNK
     Route: 065
     Dates: start: 20190106
  17. ASCORBIC ACID\CALCIUM PHOSPHATE\CHOLECALCIFEROL\CITRIC ACID MONOHYDRAT [Concomitant]
     Active Substance: ASCORBIC ACID\CALCIUM PHOSPHATE\CHOLECALCIFEROL\CITRIC ACID MONOHYDRATE
     Indication: Product used for unknown indication
     Dosage: UNK
     Route: 065
     Dates: start: 20190412
  18. PASPERTIN [Concomitant]
     Indication: Product used for unknown indication
     Dosage: UNK
     Route: 065
     Dates: start: 20190117
  19. ZOVIRAX [Concomitant]
     Active Substance: ACYCLOVIR
     Indication: Oral herpes
     Dosage: UNK
     Route: 065
     Dates: start: 20191015, end: 20191022
  20. CANDESARTAN CILEXETIL\HYDROCHLOROTHIAZIDE [Concomitant]
     Active Substance: CANDESARTAN CILEXETIL\HYDROCHLOROTHIAZIDE
     Indication: Product used for unknown indication
     Dosage: UNK
     Route: 065
     Dates: start: 20190820, end: 20200302
  21. CANDESARTAN CILEXETIL\HYDROCHLOROTHIAZIDE [Concomitant]
     Active Substance: CANDESARTAN CILEXETIL\HYDROCHLOROTHIAZIDE
     Dosage: UNK
     Route: 065
     Dates: start: 20200302
  22. CANDESARTAN CILEXETIL\HYDROCHLOROTHIAZIDE [Concomitant]
     Active Substance: CANDESARTAN CILEXETIL\HYDROCHLOROTHIAZIDE
     Dosage: UNK
     Route: 065
     Dates: start: 20200302
  23. CANDESARTAN CILEXETIL\HYDROCHLOROTHIAZIDE [Concomitant]
     Active Substance: CANDESARTAN CILEXETIL\HYDROCHLOROTHIAZIDE
     Dosage: UNK
     Route: 065
     Dates: start: 20190820, end: 20200302
  24. CARVEDILOL [Concomitant]
     Active Substance: CARVEDILOL
     Indication: Product used for unknown indication
     Dosage: UNK (ONGOING)
     Route: 065
     Dates: start: 20200210
  25. LERCANIDIPINE HYDROCHLORIDE [Concomitant]
     Active Substance: LERCANIDIPINE HYDROCHLORIDE
     Indication: Product used for unknown indication
     Dosage: UNK (ONGOING)
     Route: 065
     Dates: start: 20200226
  26. KYTRIL [Concomitant]
     Active Substance: GRANISETRON HYDROCHLORIDE
     Indication: Product used for unknown indication
     Dosage: UNK
     Route: 065
     Dates: start: 20220401, end: 20220401

REACTIONS (11)
  - Hypertensive crisis [Recovered/Resolved]
  - Blood pressure increased [Recovered/Resolved]
  - Headache [Recovered/Resolved]
  - Tonsillitis [Recovered/Resolved]
  - Pain in extremity [Unknown]
  - Arthralgia [Not Recovered/Not Resolved]
  - Myalgia [Not Recovered/Not Resolved]
  - Constipation [Recovered/Resolved]
  - Hypertension [Recovered/Resolved]
  - Fatigue [Recovered/Resolved]
  - Arthralgia [Not Recovered/Not Resolved]

NARRATIVE: CASE EVENT DATE: 20190415
